FAERS Safety Report 16577569 (Version 1)
Quarter: 2019Q3

REPORT INFORMATION
  Report Type: Spontaneous
  Country: US (occurrence: US)
  Receive Date: 20190716
  Receipt Date: 20190716
  Transmission Date: 20191004
  Serious: No
  Sender: FDA-Public Use
  Company Number: US-GLAXOSMITHKLINE-US2019126984

PATIENT
  Sex: Male

DRUGS (1)
  1. TRELEGY ELLIPTA [Suspect]
     Active Substance: FLUTICASONE FUROATE\UMECLIDINIUM BROMIDE\VILANTEROL TRIFENATATE
     Indication: CHRONIC OBSTRUCTIVE PULMONARY DISEASE
     Dosage: UNK, TAKEN 3 DOSES
     Route: 065

REACTIONS (6)
  - Lip swelling [Recovered/Resolved]
  - Drug intolerance [Unknown]
  - Hypoaesthesia oral [Unknown]
  - Mouth swelling [Unknown]
  - Pharyngeal hypoaesthesia [Unknown]
  - Pharyngeal swelling [Unknown]
